FAERS Safety Report 6587705-1 (Version None)
Quarter: 2010Q1

REPORT INFORMATION
  Report Type: 
  Country: None (occurrence: None)
  Receive Date: 20100218
  Receipt Date: 20091026
  Transmission Date: 20100710
  Serious: No
  Sender: FDA-Public Use
  Company Number: A0813379A

PATIENT
  Age: 77 Year
  Sex: Male

DRUGS (5)
  1. COREG CR [Suspect]
     Indication: HEART RATE INCREASED
     Dosage: 10MG PER DAY
     Route: 048
     Dates: start: 20090701
  2. PRANDIN [Concomitant]
  3. METFORMIN HYDROCHLORIDE [Concomitant]
  4. PROSCAR [Concomitant]
  5. CYMBALTA [Concomitant]

REACTIONS (4)
  - BRADYPHRENIA [None]
  - FATIGUE [None]
  - FEELING ABNORMAL [None]
  - SOMNOLENCE [None]
